FAERS Safety Report 4867192-1 (Version None)
Quarter: 2005Q4

REPORT INFORMATION
  Report Type: 
  Country: None (occurrence: None)
  Receive Date: 20051222
  Receipt Date: 20051212
  Transmission Date: 20060501
  Serious: Yes (Other)
  Sender: FDA-Public Use
  Company Number: 2005-02550

PATIENT
  Age: 75 Year
  Sex: Male
  Weight: 59.9 kg

DRUGS (7)
  1. VELCADE [Suspect]
     Indication: MULTIPLE MYELOMA
     Dosage: 2.20 MG, IV BOLUS
     Route: 040
     Dates: start: 20030101
  2. VELCADE [Suspect]
     Indication: MULTIPLE MYELOMA
     Dosage: 2.20 MG, IV BOLUS
     Route: 040
     Dates: start: 20050527
  3. VELCADE [Suspect]
     Indication: MULTIPLE MYELOMA
     Dosage: 2.20 MG, IV BOLUS
     Route: 040
     Dates: start: 20051001
  4. ZOMETA [Suspect]
     Indication: MULTIPLE MYELOMA
     Dosage: 3.00 MG, INTRAVENOUS
     Route: 042
     Dates: start: 20020101, end: 20051104
  5. DECADRON [Concomitant]
  6. ZOFRAN [Concomitant]
  7. BISPHOSPHONATES [Concomitant]

REACTIONS (2)
  - BLOOD CREATININE INCREASED [None]
  - MYELOMA RECURRENCE [None]
